FAERS Safety Report 9541321 (Version 1)
Quarter: 2013Q3

REPORT INFORMATION
  Report Type: Spontaneous
  Country: US (occurrence: None)
  Receive Date: 20130919
  Receipt Date: 20130919
  Transmission Date: 20140515
  Serious: Yes (Death)
  Sender: FDA-Public Use
  Company Number: None

PATIENT
  Age: 41 Year
  Sex: Female
  Weight: 73.03 kg

DRUGS (5)
  1. AMBIEN [Suspect]
     Indication: INSOMNIA
     Dosage: 1 QHS/BEDTIME ORAL
     Route: 048
     Dates: start: 20110701, end: 20130701
  2. BUSPAR [Concomitant]
  3. CELEXA [Concomitant]
  4. HYDROCODONE [Concomitant]
  5. TRAZADONE [Concomitant]

REACTIONS (1)
  - Completed suicide [None]
